FAERS Safety Report 5146657-1 (Version None)
Quarter: 2006Q4

REPORT INFORMATION
  Report Type: 
  Country: None (occurrence: None)
  Receive Date: 20061109
  Receipt Date: 20060905
  Transmission Date: 20070319
  Serious: Yes (Hospitalization)
  Sender: FDA-Public Use
  Company Number: DE-BAYER-200611161BVD

PATIENT
  Age: 56 Year
  Sex: Male

DRUGS (1)
  1. NEXAVAR [Suspect]
     Indication: RENAL CELL CARCINOMA STAGE UNSPECIFIED
     Dosage: UNIT DOSE: 400 MG
     Route: 048
     Dates: start: 20060714

REACTIONS (4)
  - APHASIA [None]
  - CEREBRAL INFARCTION [None]
  - DYSPHAGIA [None]
  - HEMIPARESIS [None]
